FAERS Safety Report 5108284-1 (Version None)
Quarter: 2006Q3

REPORT INFORMATION
  Report Type: 
  Country: None (occurrence: None)
  Receive Date: 20060919
  Receipt Date: 20060725
  Transmission Date: 20061208
  Serious: No
  Sender: FDA-Public Use
  Company Number: US-BRISTOL-MYERS SQUIBB COMPANY-13454475

PATIENT
  Age: 76 Year
  Sex: Female
  Weight: 45 kg

DRUGS (12)
  1. MEGACE [Suspect]
     Indication: DECREASED APPETITE
     Route: 048
     Dates: start: 20060613, end: 20060616
  2. DOXORUBICIN [Suspect]
     Indication: BREAST CANCER
     Dates: start: 20060116, end: 20060320
  3. ADRIAMYCIN PFS [Suspect]
     Indication: BREAST CANCER
     Dates: start: 20060116, end: 20060320
  4. DOCETAXEL [Suspect]
     Indication: BREAST CANCER
     Dates: start: 20060410, end: 20060622
  5. HERCEPTIN [Suspect]
     Indication: BREAST CANCER
     Dates: start: 20060410, end: 20060622
  6. LOPRESSOR [Concomitant]
  7. LIPITOR [Concomitant]
  8. WARFARIN SODIUM [Concomitant]
  9. LANOXIN [Concomitant]
  10. SYNTHROID [Concomitant]
  11. ENABLEX [Concomitant]
  12. BENADRYL [Concomitant]

REACTIONS (3)
  - AMNESIA [None]
  - CONFUSIONAL STATE [None]
  - HALLUCINATION [None]
